FAERS Safety Report 5151261-5 (Version None)
Quarter: 2006Q4

REPORT INFORMATION
  Report Type: 
  Country: None (occurrence: None)
  Receive Date: 20061114
  Receipt Date: 20061114
  Transmission Date: 20070319
  Serious: Yes (Other)
  Sender: FDA-Public Use
  Company Number: None

PATIENT
  Age: 78 Year
  Sex: Female
  Weight: 63.5036 kg

DRUGS (1)
  1. EQUATE   EXTRA     MCNEIL PHARM [Suspect]
     Indication: PAIN IN EXTREMITY
     Dosage: 500 MG    1 ADY   PO
     Route: 048
     Dates: start: 20060810, end: 20061108

REACTIONS (1)
  - ABDOMINAL PAIN LOWER [None]
